FAERS Safety Report 8221203-4 (Version None)
Quarter: 2012Q1

REPORT INFORMATION
  Report Type: 
  Country: None (occurrence: None)
  Receive Date: 20120320
  Receipt Date: 20120306
  Transmission Date: 20120608
  Serious: Yes (Other)
  Sender: FDA-Public Use
  Company Number: PHHY2012FR020593

PATIENT
  Sex: Female

DRUGS (3)
  1. TASIGNA [Suspect]
     Dosage: 400 MG, BID
     Dates: start: 20110901
  2. TASIGNA [Suspect]
     Dosage: 600 MG,
     Route: 048
     Dates: start: 20120101
  3. TASIGNA [Suspect]
     Indication: CHRONIC MYELOID LEUKAEMIA
     Dosage: 200 MG, BID
     Dates: start: 20110601

REACTIONS (9)
  - TRANSIENT ISCHAEMIC ATTACK [None]
  - HEADACHE [None]
  - BRADYCARDIA [None]
  - NAUSEA [None]
  - VISUAL ACUITY REDUCED [None]
  - PARALYSIS [None]
  - DYSPNOEA [None]
  - VISION BLURRED [None]
  - PAIN IN EXTREMITY [None]
